FAERS Safety Report 5160643-7 (Version None)
Quarter: 2006Q4

REPORT INFORMATION
  Report Type: 
  Country: None (occurrence: None)
  Receive Date: 20061121
  Receipt Date: 20061107
  Transmission Date: 20070319
  Serious: Yes (Other)
  Sender: FDA-Public Use
  Company Number: 2006137559

PATIENT
  Sex: Female
  Weight: 70.3075 kg

DRUGS (8)
  1. NEURONTIN [Suspect]
     Indication: PAIN
     Dosage: 1600 MG (800 MG, 2 N 1 D)
  2. XANAX [Suspect]
  3. HYDROCODONE (HYDROCODONE) [Suspect]
  4. VALIUM [Suspect]
  5. ZANAFLEX [Suspect]
  6. FENTANYL [Suspect]
     Dosage: TOPICAL
     Route: 061
  7. COMPAZINE [Concomitant]
  8. CELEXA [Concomitant]

REACTIONS (24)
  - BEDRIDDEN [None]
  - CONVULSION [None]
  - DEHYDRATION [None]
  - DEPRESSION [None]
  - DISORIENTATION [None]
  - DRUG DEPENDENCE [None]
  - DRUG WITHDRAWAL SYNDROME [None]
  - DYSARTHRIA [None]
  - FATIGUE [None]
  - HEAD BANGING [None]
  - HEAD INJURY [None]
  - HOT FLUSH [None]
  - JOINT INJURY [None]
  - MIGRAINE [None]
  - MOBILITY DECREASED [None]
  - MUSCLE SPASMS [None]
  - MUSCLE STRAIN [None]
  - NAUSEA [None]
  - PAIN [None]
  - PERFORMANCE FEAR [None]
  - SOMNOLENCE [None]
  - SPEECH DISORDER [None]
  - SUICIDAL IDEATION [None]
  - SYNCOPE [None]
